FAERS Safety Report 22048068 (Version 1)
Quarter: 2023Q1

REPORT INFORMATION
  Report Type: Spontaneous
  Country: CN (occurrence: CN)
  Receive Date: 20230301
  Receipt Date: 20230301
  Transmission Date: 20230417
  Serious: Yes (Death, Other)
  Sender: FDA-Public Use
  Company Number: CN-ASTELLAS-2023US006494

PATIENT
  Age: 23 Year
  Sex: Female

DRUGS (4)
  1. TACROLIMUS [Suspect]
     Active Substance: TACROLIMUS
     Indication: Lung transplant
     Dosage: UNK UNK, UNKNOWN FREQ.
     Route: 065
  2. METHYLPREDNISOLONE [Concomitant]
     Active Substance: METHYLPREDNISOLONE
     Indication: Lung transplant
     Dosage: UNK UNK, UNKNOWN FREQ.
     Route: 065
  3. MEROPENEM [Concomitant]
     Active Substance: MEROPENEM
     Indication: Infection prophylaxis
     Dosage: UNK UNK, UNKNOWN FREQ.
     Route: 065
  4. VORICONAZOLE [Concomitant]
     Active Substance: VORICONAZOLE
     Indication: Antifungal prophylaxis
     Dosage: UNK UNK, UNKNOWN FREQ.
     Route: 065

REACTIONS (13)
  - Multiple organ dysfunction syndrome [Fatal]
  - Urogenital infection bacterial [Fatal]
  - Herpes simplex [Fatal]
  - Pseudomonas infection [Fatal]
  - Cytomegalovirus infection [Fatal]
  - Central nervous system viral infection [Fatal]
  - Pneumonia pseudomonal [Fatal]
  - Herpes simplex pneumonia [Fatal]
  - Ureaplasma infection [Fatal]
  - Pneumonia mycoplasmal [Fatal]
  - Pneumonia cytomegaloviral [Fatal]
  - Pneumonia acinetobacter [Fatal]
  - Pneumonia viral [Fatal]
